FAERS Safety Report 15369463 (Version 1)
Quarter: 2018Q3

REPORT INFORMATION
  Report Type: Spontaneous
  Country: US (occurrence: US)
  Receive Date: 20180904
  Receipt Date: 20180904
  Transmission Date: 20181010
  Serious: No
  Sender: FDA-Public Use
  Company Number: None

PATIENT

DRUGS (1)
  1. POTASSIUM CHLORIDE POWDER, FOR SOLUTION [Suspect]
     Active Substance: POTASSIUM CHLORIDE

REACTIONS (1)
  - Product label issue [None]
